FAERS Safety Report 14151932 (Version 1)
Quarter: 2017Q4

REPORT INFORMATION
  Report Type: Spontaneous
  Country: US (occurrence: US)
  Receive Date: 20171102
  Receipt Date: 20171102
  Transmission Date: 20180321
  Serious: Yes (Other)
  Sender: FDA-Public Use
  Company Number: US-TEVA-820173ACC

PATIENT
  Sex: Female
  Weight: 49.49 kg

DRUGS (4)
  1. ADVAIR DISK [Concomitant]
     Dosage: 250/50 MG
  2. INDOMETHACIN. [Concomitant]
     Active Substance: INDOMETHACIN
  3. PARAGARD T 380A [Suspect]
     Active Substance: COPPER
     Indication: CONTRACEPTION
     Dates: start: 20170317
  4. ALBUTEROL INHALER [Concomitant]
     Active Substance: ALBUTEROL

REACTIONS (5)
  - Anaphylactic shock [Unknown]
  - Paraesthesia oral [Unknown]
  - Urticaria [Unknown]
  - Dyspnoea [Unknown]
  - Lip swelling [Unknown]
